FAERS Safety Report 11914072 (Version 1)
Quarter: 2016Q1

REPORT INFORMATION
  Report Type: Spontaneous
  Country: GB (occurrence: GB)
  Receive Date: 20160113
  Receipt Date: 20160113
  Transmission Date: 20160526
  Serious: Yes (Disabling, Other)
  Sender: FDA-Public Use
  Company Number: GB-PFIZER INC-2016006571

PATIENT
  Age: 44 Year
  Sex: Male
  Weight: 98 kg

DRUGS (2)
  1. LYRICA [Suspect]
     Active Substance: PREGABALIN
     Dosage: 75MG TWICE DAILY THEN 150MG TWICE DAILY
     Route: 048
     Dates: end: 201506
  2. LYRICA [Suspect]
     Active Substance: PREGABALIN
     Indication: ANXIETY
     Dosage: 75MG TWICE DAILY THEN 150MG TWICE DAILY
     Route: 048
     Dates: start: 201410

REACTIONS (7)
  - Fatigue [Unknown]
  - Headache [Unknown]
  - Cold sweat [Unknown]
  - Drug withdrawal syndrome [Not Recovered/Not Resolved]
  - Gastrooesophageal reflux disease [Not Recovered/Not Resolved]
  - Dizziness [Unknown]
  - Migraine [Unknown]

NARRATIVE: CASE EVENT DATE: 201411
